FAERS Safety Report 18307689 (Version 1)
Quarter: 2020Q3

REPORT INFORMATION
  Report Type: Spontaneous
  Country: JP (occurrence: JP)
  Receive Date: 20200924
  Receipt Date: 20200924
  Transmission Date: 20201103
  Serious: Yes (Other)
  Sender: FDA-Public Use
  Company Number: JP-PFIZER INC-2020296775

PATIENT
  Age: 2 Month
  Sex: Female

DRUGS (3)
  1. DEXMEDETOMIDINE HYDROCHLORIDE. [Suspect]
     Active Substance: DEXMEDETOMIDINE HYDROCHLORIDE
     Dosage: 0.25 UG/KG (UG/KG/H, REDUCED
  2. DEXMEDETOMIDINE HYDROCHLORIDE. [Suspect]
     Active Substance: DEXMEDETOMIDINE HYDROCHLORIDE
     Indication: SEDATION
     Dosage: 0.25 UG/KG (0.25 UG/KG/H))
  3. DEXMEDETOMIDINE HYDROCHLORIDE. [Suspect]
     Active Substance: DEXMEDETOMIDINE HYDROCHLORIDE
     Dosage: 0.5 UG/KG (UG/KG/H)

REACTIONS (3)
  - Sinus bradycardia [Recovering/Resolving]
  - Bradyarrhythmia [Recovering/Resolving]
  - Sinus arrest [Recovering/Resolving]
